FAERS Safety Report 7768873-2 (Version None)
Quarter: 2011Q3

REPORT INFORMATION
  Report Type: 
  Country: None (occurrence: None)
  Receive Date: 20110922
  Receipt Date: 20101207
  Transmission Date: 20111222
  Serious: No
  Sender: FDA-Public Use
  Company Number: US-ASTRAZENECA-2009UW18951

PATIENT
  Age: 50 Year
  Sex: Female
  Weight: 65.8 kg

DRUGS (6)
  1. THYROID TAB [Concomitant]
  2. SEROQUEL [Suspect]
     Route: 048
  3. GEODON [Concomitant]
  4. SEROQUEL [Suspect]
     Indication: BIPOLAR I DISORDER
     Route: 048
  5. SEROQUEL [Suspect]
     Route: 048
     Dates: start: 20080101, end: 20090101
  6. LITHIUM CARBONATE [Concomitant]

REACTIONS (8)
  - DYSPNOEA [None]
  - INSOMNIA [None]
  - DRUG DOSE OMISSION [None]
  - PALPITATIONS [None]
  - DRY MOUTH [None]
  - ALOPECIA [None]
  - NASAL CONGESTION [None]
  - PANIC ATTACK [None]
